FAERS Safety Report 10779468 (Version 6)
Quarter: 2015Q3

REPORT INFORMATION
  Report Type: Spontaneous
  Country: US (occurrence: US)
  Receive Date: 20150210
  Receipt Date: 20150811
  Transmission Date: 20151125
  Serious: Yes (Hospitalization, Congenital Anomaly, Other)
  Sender: FDA-Public Use
  Company Number: US-APOTEX-2015AP006350

PATIENT
  Age: 0 Day
  Sex: Male

DRUGS (8)
  1. FENTANYL TRANSDERMAL SYSTEM [Suspect]
     Active Substance: FENTANYL
     Indication: PRODUCT USED FOR UNKNOWN INDICATION
     Dosage: UNK
     Route: 065
  2. PAXIL CR [Suspect]
     Active Substance: PAROXETINE HYDROCHLORIDE
     Indication: ANXIETY
     Dosage: 25 MG, DAILY
     Route: 064
     Dates: end: 2004
  3. PAXIL CR [Suspect]
     Active Substance: PAROXETINE HYDROCHLORIDE
     Indication: DEPRESSION
  4. ZYPREXA [Concomitant]
     Active Substance: OLANZAPINE
     Indication: PRODUCT USED FOR UNKNOWN INDICATION
     Route: 064
  5. PRECARE [Concomitant]
     Indication: PRODUCT USED FOR UNKNOWN INDICATION
     Dosage: UNK
     Route: 064
     Dates: end: 20031113
  6. PAXIL [Suspect]
     Active Substance: PAROXETINE HYDROCHLORIDE
     Indication: ANXIETY
     Dosage: 25 MG, DAILY
     Route: 064
     Dates: end: 2004
  7. PAXIL [Suspect]
     Active Substance: PAROXETINE HYDROCHLORIDE
     Indication: DEPRESSION
     Dosage: 50 MG, DAILY
     Route: 064
  8. ZANTAC [Concomitant]
     Active Substance: RANITIDINE HYDROCHLORIDE
     Indication: PRODUCT USED FOR UNKNOWN INDICATION
     Dosage: 150 MG, BID
     Route: 064
     Dates: end: 20040515

REACTIONS (19)
  - Cardiac arrest [Unknown]
  - Deafness neurosensory [Unknown]
  - Asthma [Unknown]
  - Pneumonia [Unknown]
  - Adenoiditis [Unknown]
  - Injury [Unknown]
  - Bronchial hyperreactivity [Unknown]
  - Adenoidal hypertrophy [Unknown]
  - Pulmonary valve incompetence [Unknown]
  - Talipes [Unknown]
  - Otitis media chronic [Unknown]
  - Product use issue [Unknown]
  - Attention deficit/hyperactivity disorder [Unknown]
  - Foetal exposure during pregnancy [Unknown]
  - Respiratory failure [Unknown]
  - Convulsion neonatal [Unknown]
  - Respiratory arrest [Unknown]
  - Arrhythmia [Unknown]
  - Overdose [Unknown]

NARRATIVE: CASE EVENT DATE: 20040612
